FAERS Safety Report 4627898-6 (Version None)
Quarter: 2005Q2

REPORT INFORMATION
  Report Type: 
  Country: None (occurrence: None)
  Receive Date: 20050404
  Receipt Date: 20050404
  Transmission Date: 20051028
  Serious: Yes (Hospitalization)
  Sender: FDA-Public Use
  Company Number: None

PATIENT
  Sex: Female
  Weight: 65 kg

DRUGS (2)
  1. GEMZAR [Suspect]
     Indication: OVARIAN CANCER
     Dosage: 1760MG DAY 1, DAY 8 INTRAVENOUS
     Route: 042
     Dates: start: 20050317, end: 20050324
  2. CARBOPLATIN [Suspect]
     Indication: OVARIAN CANCER
     Dosage: 400 MG DAY1 INTRAVENOUS
     Route: 042
     Dates: start: 20050317, end: 20050317

REACTIONS (1)
  - FEBRILE NEUTROPENIA [None]
